FAERS Safety Report 9438032 (Version 1)
Quarter: 2013Q3

REPORT INFORMATION
  Report Type: Spontaneous
  Country: US (occurrence: US)
  Receive Date: 20130802
  Receipt Date: 20130802
  Transmission Date: 20140515
  Serious: No
  Sender: FDA-Public Use
  Company Number: US-BRISTOL-MYERS SQUIBB COMPANY-16722621

PATIENT
  Age: 87 Year
  Sex: Female

DRUGS (6)
  1. COUMADIN [Suspect]
     Dosage: DOSE INCREASED 3MG
  2. PRADAXA [Suspect]
  3. METOPROLOL [Concomitant]
  4. DIOVAN [Concomitant]
  5. SIMVASTATIN [Concomitant]
  6. OMEPRAZOLE [Concomitant]

REACTIONS (2)
  - Pruritus [Not Recovered/Not Resolved]
  - Contusion [Not Recovered/Not Resolved]
